FAERS Safety Report 10967284 (Version 3)
Quarter: 2015Q2

REPORT INFORMATION
  Report Type: Spontaneous
  Country: JP (occurrence: JP)
  Receive Date: 20150330
  Receipt Date: 20150420
  Transmission Date: 20150821
  Serious: Yes (Disabling, Other)
  Sender: FDA-Public Use
  Company Number: JP-RECKITT BENCKISER PHARMACEUTICAL, INC-RB-077663-2015

PATIENT
  Age: 88 Year
  Sex: Male

DRUGS (1)
  1. LEPETAN [Suspect]
     Active Substance: BUPRENORPHINE HYDROCHLORIDE
     Indication: SEDATION
     Dosage: 66CC DISSOLVEDIN SALINE OF 100CC
     Route: 051

REACTIONS (5)
  - Altered state of consciousness [Unknown]
  - Cardiac arrest [Recovered/Resolved]
  - Wrong technique in drug usage process [Unknown]
  - Respiratory depression [Unknown]
  - Off label use [Unknown]
